FAERS Safety Report 18330200 (Version 4)
Quarter: 2020Q4

REPORT INFORMATION
  Report Type: Spontaneous
  Country: US (occurrence: US)
  Receive Date: 20200930
  Receipt Date: 20201222
  Transmission Date: 20210113
  Serious: No
  Sender: FDA-Public Use
  Company Number: US-BIOGEN-2020BI00929043

PATIENT
  Age: 56 Year
  Sex: Female

DRUGS (1)
  1. PLEGRIDY [Suspect]
     Active Substance: PEGINTERFERON BETA-1A
     Indication: MULTIPLE SCLEROSIS
     Route: 058
     Dates: start: 20170927, end: 20201007

REACTIONS (9)
  - Gait inability [Unknown]
  - Nausea [Recovered/Resolved]
  - Syncope [Unknown]
  - Head injury [Unknown]
  - Mobility decreased [Unknown]
  - Headache [Recovered/Resolved]
  - Immune system disorder [Unknown]
  - Memory impairment [Unknown]
  - Poor quality sleep [Unknown]

NARRATIVE: CASE EVENT DATE: 2019
